FAERS Safety Report 4969157-8 (Version None)
Quarter: 2006Q2

REPORT INFORMATION
  Report Type: 
  Country: None (occurrence: None)
  Receive Date: 20060411
  Receipt Date: 20050927
  Transmission Date: 20061013
  Serious: No
  Sender: FDA-Public Use
  Company Number: US-BRISTOL-MYERS SQUIBB COMPANY-13123302

PATIENT
  Age: 51 Year
  Sex: Female
  Weight: 121 kg

DRUGS (9)
  1. CARBOPLATIN [Suspect]
     Indication: BREAST CANCER
     Route: 042
     Dates: start: 20050601, end: 20050921
  2. TAXOTERE [Concomitant]
     Route: 042
     Dates: start: 20050601, end: 20050921
  3. BENICAR [Concomitant]
     Route: 048
  4. DAYPRO [Concomitant]
     Route: 048
  5. ANZEMET [Concomitant]
     Indication: PREMEDICATION
     Route: 042
  6. DECADRON [Concomitant]
     Indication: PREMEDICATION
     Route: 042
  7. PEPCID [Concomitant]
     Indication: PREMEDICATION
     Route: 042
  8. HERCEPTIN [Concomitant]
     Route: 042
  9. ARANESP [Concomitant]
     Route: 058

REACTIONS (5)
  - DIZZINESS [None]
  - LETHARGY [None]
  - NAUSEA [None]
  - PRURITUS GENERALISED [None]
  - VOMITING [None]
